FAERS Safety Report 15812380 (Version 2)
Quarter: 2019Q1

REPORT INFORMATION
  Report Type: Spontaneous
  Country: DE (occurrence: DE)
  Receive Date: 20190111
  Receipt Date: 20190219
  Transmission Date: 20190417
  Serious: Yes (Death, Hospitalization)
  Sender: FDA-Public Use
  Company Number: DE-BAUSCH-BL-2019-000477

PATIENT
  Age: 94 Year
  Sex: Female
  Weight: 58 kg

DRUGS (7)
  1. DIAZEPAM. [Suspect]
     Active Substance: DIAZEPAM
     Indication: PRODUCT USED FOR UNKNOWN INDICATION
     Dosage: UNKNOWN
     Route: 065
  2. TORASEMIDE [Concomitant]
     Active Substance: TORSEMIDE
     Indication: ESSENTIAL HYPERTENSION
     Dosage: MORNING
     Route: 065
  3. HEPARIN [Concomitant]
     Active Substance: HEPARIN SODIUM
     Indication: PRODUCT USED FOR UNKNOWN INDICATION
     Dosage: AFTERNOON
     Route: 065
     Dates: start: 201605
  4. METOCLOPRAMIDE. [Concomitant]
     Active Substance: METOCLOPRAMIDE
     Indication: GASTROINTESTINAL DISORDER
     Dosage: MORNING
     Route: 065
     Dates: start: 201505
  5. ASPIRIN PROTECT [Concomitant]
     Active Substance: ASPIRIN
     Indication: CEREBROVASCULAR ACCIDENT
     Dosage: AFTERNOON
     Route: 065
     Dates: start: 199707
  6. MOXIFLOXACIN HEXAL [Suspect]
     Active Substance: MOXIFLOXACIN HYDROCHLORIDE
     Indication: URINARY TRACT INFECTION
     Route: 048
     Dates: start: 20181215, end: 20181217
  7. DOMPERIDONE RATIOPHARM [Suspect]
     Active Substance: DOMPERIDONE
     Indication: GASTROINTESTINAL DISORDER
     Route: 048
     Dates: start: 2015, end: 20181218

REACTIONS (12)
  - Hallucination [Recovering/Resolving]
  - Agitation [Recovering/Resolving]
  - Cystitis [Recovering/Resolving]
  - Logorrhoea [Recovering/Resolving]
  - Crying [Recovering/Resolving]
  - Anxiety disorder [Recovering/Resolving]
  - Heart rate increased [Recovering/Resolving]
  - Panic attack [Recovering/Resolving]
  - Confusional state [Recovering/Resolving]
  - Psychomotor hyperactivity [Recovering/Resolving]
  - Abnormal behaviour [Recovering/Resolving]
  - Pneumonia aspiration [Fatal]

NARRATIVE: CASE EVENT DATE: 20181215
